FAERS Safety Report 6264102-X (Version None)
Quarter: 2009Q3

REPORT INFORMATION
  Report Type: 
  Country: None (occurrence: None)
  Receive Date: 20090710
  Receipt Date: 20090630
  Transmission Date: 20100115
  Serious: Yes (Hospitalization)
  Sender: FDA-Public Use
  Company Number: US-ELI_LILLY_AND_COMPANY-US200907000100

PATIENT
  Sex: Male

DRUGS (4)
  1. ZYPREXA [Suspect]
     Indication: COGNITIVE DISORDER
     Dosage: 5 MG, 2/D
     Dates: start: 20040101
  2. ZYPREXA [Suspect]
     Dosage: 10 MG, 2/D
     Dates: start: 20090601, end: 20090601
  3. ZYPREXA [Suspect]
     Dosage: 5 MG, 2/D
     Dates: start: 20090601
  4. TRILEPTAL [Concomitant]

REACTIONS (5)
  - CONFUSIONAL STATE [None]
  - FATIGUE [None]
  - OFF LABEL USE [None]
  - SELF-INJURIOUS IDEATION [None]
  - THINKING ABNORMAL [None]
